FAERS Safety Report 5750867-X (Version None)
Quarter: 2008Q2

REPORT INFORMATION
  Report Type: 
  Country: None (occurrence: None)
  Receive Date: 20080528
  Receipt Date: 20080522
  Transmission Date: 20081010
  Serious: Yes (Other)
  Sender: FDA-Public Use
  Company Number: NO-WYE-G01584008

PATIENT
  Sex: Male

DRUGS (5)
  1. EFFEXOR [Suspect]
  2. ZOLOFT [Suspect]
  3. NOZINAN [Suspect]
  4. ANAFRANIL [Suspect]
  5. ESCITALOPRAM [Suspect]

REACTIONS (7)
  - DEPRESSION [None]
  - DIZZINESS [None]
  - DRUG WITHDRAWAL SYNDROME [None]
  - ERECTILE DYSFUNCTION [None]
  - FATIGUE [None]
  - FEELING ABNORMAL [None]
  - SUICIDE ATTEMPT [None]
